FAERS Safety Report 11704383 (Version 1)
Quarter: 2015Q4

REPORT INFORMATION
  Report Type: Spontaneous
  Country: US (occurrence: US)
  Receive Date: 20151106
  Receipt Date: 20151106
  Transmission Date: 20160304
  Serious: No
  Sender: FDA-Public Use
  Company Number: US-BIOGENIDEC-2015BI147538

PATIENT
  Sex: Female

DRUGS (1)
  1. TECFIDERA [Suspect]
     Active Substance: DIMETHYL FUMARATE
     Indication: MULTIPLE SCLEROSIS

REACTIONS (7)
  - Fall [Recovered/Resolved]
  - Fatigue [Unknown]
  - Hypoaesthesia [Unknown]
  - Adverse reaction [Unknown]
  - Injury [Unknown]
  - Balance disorder [Unknown]
  - Pain in extremity [Unknown]
